APPROVED DRUG PRODUCT: VORICONAZOLE
Active Ingredient: VORICONAZOLE
Strength: 50MG
Dosage Form/Route: TABLET;ORAL
Application: A090547 | Product #001 | TE Code: AB
Applicant: MYLAN PHARMACEUTICALS INC
Approved: Apr 22, 2010 | RLD: No | RS: No | Type: RX